FAERS Safety Report 7231492-0 (Version None)
Quarter: 2011Q1

REPORT INFORMATION
  Report Type: 
  Country: None (occurrence: None)
  Receive Date: 20110118
  Receipt Date: 20110112
  Transmission Date: 20110831
  Serious: Yes (Congenital Anomaly)
  Sender: FDA-Public Use
  Company Number: US-CEPHALON-2010001312

PATIENT
  Sex: Male
  Weight: 3 kg

DRUGS (8)
  1. LEVOTHYROXINE [Concomitant]
     Dates: start: 20090101
  2. BUSPAR [Concomitant]
     Dates: start: 20090101
  3. NASONEX [Concomitant]
     Dates: start: 20090101
  4. OB NATAL [Concomitant]
     Dates: start: 20090101
  5. PROVIGIL [Suspect]
     Route: 064
     Dates: start: 20090101
  6. LEXAPRO [Concomitant]
     Dates: start: 20090101
  7. XYREM [Concomitant]
  8. METFORMIN [Concomitant]
     Dates: start: 20090101

REACTIONS (3)
  - TRANSPOSITION OF THE GREAT VESSELS [None]
  - VENTRICULAR SEPTAL DEFECT [None]
  - CARDIAC MURMUR [None]
